FAERS Safety Report 4286751-0 (Version None)
Quarter: 2004Q1

REPORT INFORMATION
  Report Type: 
  Country: None (occurrence: None)
  Receive Date: 20040206
  Receipt Date: 20040127
  Transmission Date: 20041129
  Serious: Yes (Death)
  Sender: FDA-Public Use
  Company Number: ES-GLAXOSMITHKLINE-B0321208A

PATIENT
  Sex: Female

DRUGS (1)
  1. HYCAMTIN [Suspect]

REACTIONS (3)
  - DEATH [None]
  - HAEMATOTOXICITY [None]
  - MUCOSAL INFLAMMATION [None]
